FAERS Safety Report 7400366-4 (Version None)
Quarter: 2011Q2

REPORT INFORMATION
  Report Type: 
  Country: None (occurrence: None)
  Receive Date: 20110407
  Receipt Date: 20110401
  Transmission Date: 20111010
  Serious: Yes (Disabling)
  Sender: FDA-Public Use
  Company Number: US-MERCK-1104USA00100

PATIENT
  Age: 81 Year
  Sex: Male
  Weight: 75 kg

DRUGS (6)
  1. FUROSEMIDE [Concomitant]
     Indication: CARDIAC DISORDER
     Route: 048
  2. ENALAPRIL MALEATE [Concomitant]
     Indication: DIURETIC THERAPY
     Route: 065
  3. ZOCOR [Suspect]
     Indication: BLOOD CHOLESTEROL INCREASED
     Route: 048
     Dates: start: 20060101
  4. METOPROLOL [Concomitant]
     Indication: CARDIAC FAILURE CONGESTIVE
     Route: 048
  5. ISOSORBIDE [Concomitant]
     Indication: CARDIAC DISORDER
     Route: 048
  6. IRON (UNSPECIFIED) [Concomitant]
     Route: 048

REACTIONS (1)
  - BLINDNESS [None]
